FAERS Safety Report 7438112-0 (Version None)
Quarter: 2011Q2

REPORT INFORMATION
  Report Type: 
  Country: None (occurrence: None)
  Receive Date: 20110421
  Receipt Date: 20110421
  Transmission Date: 20111010
  Serious: Yes (Life-Threatening, Hospitalization)
  Sender: FDA-Public Use
  Company Number: None

PATIENT
  Age: 69 Year
  Sex: Male
  Weight: 92.1 kg

DRUGS (2)
  1. CARBOPLATIN [Suspect]
     Indication: NON-SMALL CELL LUNG CANCER
     Dosage: 100 EVERY 14 DAYS IV DRIP
     Route: 041
     Dates: start: 20110404, end: 20110404
  2. ABRAXANE [Suspect]
     Indication: NON-SMALL CELL LUNG CANCER
     Dosage: 100MG EVERY 14 DAYS IV DRIP
     Route: 041
     Dates: start: 20110404, end: 20110404

REACTIONS (16)
  - BLOOD PRESSURE SYSTOLIC INCREASED [None]
  - HAEMODIALYSIS [None]
  - ASTHENIA [None]
  - COLD AGGLUTININS POSITIVE [None]
  - CONFUSIONAL STATE [None]
  - PLATELET COUNT DECREASED [None]
  - BRAIN NATRIURETIC PEPTIDE INCREASED [None]
  - ASPARTATE AMINOTRANSFERASE INCREASED [None]
  - CHILLS [None]
  - TREMOR [None]
  - HEART RATE INCREASED [None]
  - BLOOD GLUCOSE INCREASED [None]
  - RENAL FAILURE ACUTE [None]
  - BLOOD LACTATE DEHYDROGENASE INCREASED [None]
  - WHITE BLOOD CELL COUNT DECREASED [None]
  - INTRAVASCULAR HAEMOLYSIS [None]
